FAERS Safety Report 8839795 (Version 1)
Quarter: 2012Q4

REPORT INFORMATION
  Report Type: 
  Country: US (occurrence: US)
  Receive Date: 20121015
  Receipt Date: 20121015
  Transmission Date: 20130627
  Serious: No
  Sender: FDA-Public Use
  Company Number: US-BRISTOL-MYERS SQUIBB COMPANY-16214371

PATIENT
  Age: 17 Year
  Sex: Female
  Weight: 55 kg

DRUGS (1)
  1. KENALOG-40 INJ [Suspect]
     Indication: DRUG HYPERSENSITIVITY
     Route: 030
     Dates: start: 20110817, end: 2011

REACTIONS (3)
  - Injection site atrophy [Not Recovered/Not Resolved]
  - Fatigue [Unknown]
  - Somnolence [Unknown]
